FAERS Safety Report 6883495-3 (Version None)
Quarter: 2010Q3

REPORT INFORMATION
  Report Type: 
  Country: None (occurrence: None)
  Receive Date: 20100729
  Receipt Date: 20100726
  Transmission Date: 20110219
  Serious: Yes (Death, Other)
  Sender: FDA-Public Use
  Company Number: FR-MERCK-1007USA00430

PATIENT

DRUGS (2)
  1. PRIMAXIN [Suspect]
     Route: 041
  2. CUBICIN [Suspect]
     Route: 051

REACTIONS (4)
  - ACUTE FEBRILE NEUTROPHILIC DERMATOSIS [None]
  - METASTATIC MALIGNANT MELANOMA [None]
  - SKIN LESION [None]
  - TOXIC SKIN ERUPTION [None]
